FAERS Safety Report 6230952-9 (Version None)
Quarter: 2009Q2

REPORT INFORMATION
  Report Type: 
  Country: None (occurrence: None)
  Receive Date: 20090616
  Receipt Date: 20090615
  Transmission Date: 20091009
  Serious: Yes (Other)
  Sender: FDA-Public Use
  Company Number: US-BAYER-200839261NA

PATIENT
  Age: 32 Year
  Sex: Female
  Weight: 50 kg

DRUGS (1)
  1. MIRENA [Suspect]
     Indication: CONTRACEPTION
     Route: 015
     Dates: start: 20060901, end: 20081010

REACTIONS (15)
  - ABDOMINAL PAIN LOWER [None]
  - ANXIETY [None]
  - BEDRIDDEN [None]
  - CHEST PAIN [None]
  - COMPLICATION OF DEVICE REMOVAL [None]
  - DEPRESSION [None]
  - DEVICE BREAKAGE [None]
  - DYSPAREUNIA [None]
  - FATIGUE [None]
  - INTRA-UTERINE CONTRACEPTIVE DEVICE REMOVAL [None]
  - IUCD COMPLICATION [None]
  - IUD MIGRATION [None]
  - PAIN [None]
  - PLEURISY [None]
  - UTERINE PAIN [None]
